FAERS Safety Report 5743451-5 (Version None)
Quarter: 2008Q2

REPORT INFORMATION
  Report Type: 
  Country: None (occurrence: None)
  Receive Date: 20080519
  Receipt Date: 20080519
  Transmission Date: 20081010
  Serious: Yes (Other)
  Sender: FDA-Public Use
  Company Number: None

PATIENT
  Age: 49 Year
  Sex: Female

DRUGS (2)
  1. FENTANYL TRANSDERMAL SYSTEM [Suspect]
     Indication: INTERVERTEBRAL DISC DEGENERATION
     Dosage: APPLY ONE PATCH EVERY 72 HOURS
     Dates: start: 20070401
  2. FENTANYL TRANSDERMAL SYSTEM [Suspect]
     Indication: PAIN
     Dosage: APPLY ONE PATCH EVERY 72 HOURS
     Dates: start: 20070401

REACTIONS (5)
  - ANOREXIA [None]
  - FEELING JITTERY [None]
  - NAUSEA [None]
  - PAIN [None]
  - SEDATION [None]
